FAERS Safety Report 5940867-9 (Version None)
Quarter: 2008Q4

REPORT INFORMATION
  Report Type: 
  Country: None (occurrence: None)
  Receive Date: 20081104
  Receipt Date: 20081024
  Transmission Date: 20090506
  Serious: Yes (Hospitalization)
  Sender: FDA-Public Use
  Company Number: US-BAXTER-2008BH011476

PATIENT
  Age: 65 Year
  Sex: Female
  Weight: 78 kg

DRUGS (5)
  1. CYCLOPHOSPHAMIDE [Suspect]
     Indication: BREAST CANCER
     Route: 042
     Dates: start: 20080710, end: 20080821
  2. EPIRUBICIN [Suspect]
     Indication: BREAST CANCER
     Route: 042
     Dates: start: 20080710, end: 20080821
  3. TAXOL [Suspect]
     Indication: BREAST CANCER
     Route: 042
     Dates: start: 20080904
  4. XELODA [Suspect]
     Indication: BREAST CANCER
     Route: 048
     Dates: start: 20080904
  5. NEORECORMON ^BOEHRINGER MANNHEIM^ [Concomitant]
     Route: 058
     Dates: start: 20080710

REACTIONS (2)
  - GENERAL PHYSICAL CONDITION ABNORMAL [None]
  - PYREXIA [None]
